FAERS Safety Report 9453138 (Version 1)
Quarter: 2013Q3

REPORT INFORMATION
  Report Type: Spontaneous
  Country: US (occurrence: US)
  Receive Date: 20130812
  Receipt Date: 20130812
  Transmission Date: 20140515
  Serious: Yes (Hospitalization)
  Sender: FDA-Public Use
  Company Number: PHEH2013US016558

PATIENT
  Sex: Male

DRUGS (2)
  1. TOBI [Suspect]
     Dosage: UNK
  2. ADVAIR [Concomitant]
     Dosage: UNK UKN, UNK

REACTIONS (1)
  - Pneumonia bacterial [Unknown]
